FAERS Safety Report 7703495-0 (Version None)
Quarter: 2011Q3

REPORT INFORMATION
  Report Type: 
  Country: None (occurrence: None)
  Receive Date: 20110823
  Receipt Date: 20110817
  Transmission Date: 20111222
  Serious: Yes (Hospitalization, Other)
  Sender: FDA-Public Use
  Company Number: US-GILEAD-2011-0043002

PATIENT
  Age: 57 Year
  Sex: Female

DRUGS (6)
  1. LETAIRIS [Suspect]
     Indication: PULMONARY HYPERTENSION
     Route: 048
     Dates: start: 20101201
  2. SIMAVASTATIN [Concomitant]
  3. INSULIN ASPART [Concomitant]
  4. ASPIRIN [Suspect]
  5. IPRATROPIUM BROMIDE [Concomitant]
  6. NAPROXEN [Suspect]

REACTIONS (7)
  - HYPOTENSION [None]
  - PRESYNCOPE [None]
  - ULCER [None]
  - OCCULT BLOOD POSITIVE [None]
  - FATIGUE [None]
  - DIZZINESS [None]
  - HAEMOGLOBIN DECREASED [None]
